FAERS Safety Report 19882116 (Version 1)
Quarter: 2021Q3

REPORT INFORMATION
  Report Type: Report from Study
  Country: FR (occurrence: FR)
  Receive Date: 20210924
  Receipt Date: 20210924
  Transmission Date: 20211014
  Serious: Yes (Hospitalization)
  Sender: FDA-Public Use
  Company Number: FR-TAKEDA-2021TUS058689

PATIENT
  Age: 13 Year
  Sex: Male

DRUGS (8)
  1. TEDUGLUTIDE [Suspect]
     Active Substance: TEDUGLUTIDE
     Indication: SHORT-BOWEL SYNDROME
     Dosage: 1.5 MILLIGRAM, QD
     Route: 065
     Dates: start: 20190605
  2. VITAMIN A [Concomitant]
     Active Substance: VITAMIN A
     Indication: VITAMIN A DEFICIENCY
     Dosage: 1 UNK
     Route: 048
     Dates: start: 20200525
  3. TEDUGLUTIDE [Suspect]
     Active Substance: TEDUGLUTIDE
     Indication: SHORT-BOWEL SYNDROME
     Dosage: 1.5 MILLIGRAM, QD
     Route: 065
     Dates: start: 20190605
  4. TEDUGLUTIDE [Suspect]
     Active Substance: TEDUGLUTIDE
     Indication: SHORT-BOWEL SYNDROME
     Dosage: 1.5 MILLIGRAM, QD
     Route: 065
     Dates: start: 20190605
  5. TEDUGLUTIDE [Suspect]
     Active Substance: TEDUGLUTIDE
     Indication: SHORT-BOWEL SYNDROME
     Dosage: 1.5 MILLIGRAM, QD
     Route: 065
     Dates: start: 20190605
  6. BIONOLYTE GLUCOSE [Concomitant]
     Indication: BLOOD DISORDER
     Dosage: 73 MICROLITER, Q1HR
     Route: 042
     Dates: start: 20200520, end: 20200522
  7. CLAFORAN [Concomitant]
     Active Substance: CEFOTAXIME SODIUM
     Indication: URINARY TRACT INFECTION
     Dosage: 1 GRAM, Q8HR
     Route: 042
     Dates: start: 20200627, end: 20200711
  8. CEFIXIME RANBAXY [Concomitant]
     Indication: URINARY TRACT INFECTION
     Dosage: 200 MILLIGRAM, BID
     Route: 048
     Dates: start: 20200629, end: 20200711

REACTIONS (1)
  - Catheter placement [Recovered/Resolved]

NARRATIVE: CASE EVENT DATE: 20191013
